FAERS Safety Report 9018422 (Version 1)
Quarter: 2013Q1

REPORT INFORMATION
  Report Type: Spontaneous
  Country: US (occurrence: US)
  Receive Date: 20130118
  Receipt Date: 20130118
  Transmission Date: 20140127
  Serious: Yes (Other)
  Sender: FDA-Public Use
  Company Number: PHEH2013US001277

PATIENT
  Sex: Female

DRUGS (11)
  1. TEKTURNA [Suspect]
  2. HYDRALAZINE [Suspect]
  3. LOTREL [Suspect]
  4. CLONIDINE [Suspect]
  5. DILTIAZEM [Suspect]
  6. NIFEDIPINE [Suspect]
  7. CARDIZEM [Suspect]
  8. COREG [Suspect]
  9. ATACAND [Suspect]
  10. NORVASC [Suspect]
  11. BENADRYL [Concomitant]

REACTIONS (13)
  - Poisoning [Unknown]
  - Weight increased [Unknown]
  - Fluid retention [Unknown]
  - Myalgia [Unknown]
  - Dry mouth [Unknown]
  - Insomnia [Unknown]
  - Sleep disorder [Unknown]
  - Hypoaesthesia [Unknown]
  - Depression [Unknown]
  - Drug hypersensitivity [Unknown]
  - Rash [Unknown]
  - Hypotension [Unknown]
  - Diarrhoea [Unknown]
